FAERS Safety Report 24467054 (Version 1)
Quarter: 2024Q4

REPORT INFORMATION
  Report Type: Report from Study
  Country: US (occurrence: US)
  Receive Date: 20241018
  Receipt Date: 20241018
  Transmission Date: 20250115
  Serious: No
  Sender: ROCHE
  Company Number: US-ROCHE-3559902

PATIENT
  Age: 81 Year
  Sex: Male

DRUGS (11)
  1. XOLAIR [Suspect]
     Active Substance: OMALIZUMAB
     Indication: Nasal polyps
     Route: 065
  2. XOLAIR [Suspect]
     Active Substance: OMALIZUMAB
  3. IPRATROPIUM BROMIDE [Concomitant]
     Active Substance: IPRATROPIUM BROMIDE
  4. ISOSORBIDE MONONITRATE [Concomitant]
     Active Substance: ISOSORBIDE MONONITRATE
  5. NITROSTAT [Concomitant]
     Active Substance: NITROGLYCERIN
  6. OFEV [Concomitant]
     Active Substance: NINTEDANIB
  7. OMEPRAZOLE [Concomitant]
     Active Substance: OMEPRAZOLE
  8. INDOMETHACIN [Concomitant]
     Active Substance: INDOMETHACIN
  9. SIMVASTATIN [Concomitant]
     Active Substance: SIMVASTATIN
  10. DORZOLAMIDE [Concomitant]
     Active Substance: DORZOLAMIDE
  11. AMLODIPINE [Concomitant]
     Active Substance: AMLODIPINE BESYLATE

REACTIONS (2)
  - Off label use [Unknown]
  - No adverse event [Unknown]
